FAERS Safety Report 19511046 (Version 2)
Quarter: 2021Q3

REPORT INFORMATION
  Report Type: Spontaneous
  Country: JP (occurrence: JP)
  Receive Date: 20210709
  Receipt Date: 20210802
  Transmission Date: 20211014
  Serious: Yes (Other)
  Sender: FDA-Public Use
  Company Number: JP-JNJFOC-20210718333

PATIENT
  Age: 8 Decade
  Sex: Male

DRUGS (1)
  1. DARZALEX [Suspect]
     Active Substance: DARATUMUMAB
     Indication: AMYLOIDOSIS
     Dosage: DOSE UNKNOWN
     Route: 041

REACTIONS (3)
  - Myelosuppression [Unknown]
  - Product use in unapproved indication [Unknown]
  - Off label use [Unknown]
